FAERS Safety Report 22086857 (Version 3)
Quarter: 2024Q3

REPORT INFORMATION
  Report Type: Report from Study
  Country: US (occurrence: US)
  Receive Date: 20230312
  Receipt Date: 20240925
  Transmission Date: 20241016
  Serious: No
  Sender: NOVARTIS
  Company Number: US-002147023-NVSC2023US055439

PATIENT
  Age: 69 Year
  Sex: Female

DRUGS (2)
  1. LEQVIO [Suspect]
     Active Substance: INCLISIRAN SODIUM
     Indication: Product used for unknown indication
     Dosage: UNK
     Route: 058
     Dates: start: 20230228
  2. LEQVIO [Suspect]
     Active Substance: INCLISIRAN SODIUM
     Dosage: UNK
     Route: 065

REACTIONS (6)
  - Weight increased [Recovered/Resolved]
  - Urine flow decreased [Unknown]
  - Arthralgia [Unknown]
  - Gait disturbance [Unknown]
  - Muscle fatigue [Recovered/Resolved]
  - Asthenia [Recovered/Resolved]
